FAERS Safety Report 20216550 (Version 1)
Quarter: 2021Q4

REPORT INFORMATION
  Report Type: Spontaneous
  Country: US (occurrence: None)
  Receive Date: 20211221
  Receipt Date: 20211221
  Transmission Date: 20220303
  Serious: No
  Sender: FDA-Public Use
  Company Number: None

PATIENT
  Age: 48 Year
  Sex: Male

DRUGS (1)
  1. SERTRALINE HYDROCHLORIDE [Suspect]
     Active Substance: SERTRALINE HYDROCHLORIDE
     Indication: Priapism
     Dosage: FREQUENCY : DAILY;?
     Route: 048
     Dates: start: 20210224, end: 20211012

REACTIONS (1)
  - Priapism [None]

NARRATIVE: CASE EVENT DATE: 20211001
